FAERS Safety Report 4944386-8 (Version None)
Quarter: 2006Q1

REPORT INFORMATION
  Report Type: 
  Country: None (occurrence: None)
  Receive Date: 20060315
  Receipt Date: 20051019
  Transmission Date: 20060701
  Serious: Yes (Hospitalization)
  Sender: FDA-Public Use
  Company Number: US-MERCK-0510USA08316

PATIENT
  Age: 67 Year
  Sex: Female

DRUGS (9)
  1. VIOXX [Suspect]
     Route: 048
     Dates: start: 20020101, end: 20040701
  2. ASPIRIN [Concomitant]
     Route: 065
  3. LIPITOR [Concomitant]
     Route: 065
  4. NEXIUM [Concomitant]
     Route: 065
  5. TENORETIC 100 [Concomitant]
     Route: 065
  6. ESTROGENS (UNSPECIFIED) [Concomitant]
     Route: 065
  7. POTASSIUM (UNSPECIFIED) [Concomitant]
     Route: 065
  8. VITAMINS (UNSPECIFIED) [Concomitant]
     Route: 065
  9. NEURONTIN [Concomitant]
     Route: 065

REACTIONS (7)
  - ANAEMIA [None]
  - ATRIAL SEPTAL DEFECT [None]
  - DILATATION ATRIAL [None]
  - DILATATION VENTRICULAR [None]
  - ISCHAEMIC STROKE [None]
  - MITRAL VALVE INCOMPETENCE [None]
  - TRICUSPID VALVE INCOMPETENCE [None]
